FAERS Safety Report 25113408 (Version 1)
Quarter: 2025Q1

REPORT INFORMATION
  Report Type: Spontaneous
  Country: US (occurrence: US)
  Receive Date: 20250324
  Receipt Date: 20250324
  Transmission Date: 20250408
  Serious: No
  Sender: ITALFARMACO SPA
  Company Number: US-ITALFARMACO SPA-2173547

PATIENT
  Age: 6 Year
  Sex: Male
  Weight: 20.02 kg

DRUGS (5)
  1. DUVYZAT [Suspect]
     Active Substance: GIVINOSTAT
     Indication: Muscular dystrophy
     Dates: start: 20241224
  2. FAMOTIDINE [Concomitant]
     Active Substance: FAMOTIDINE
  3. SOLU-CORTEF [Concomitant]
     Active Substance: HYDROCORTISONE SODIUM SUCCINATE
  4. VITAMIN D NOS [Concomitant]
     Active Substance: CHOLECALCIFEROL\ERGOCALCIFEROL
  5. PREDNISOLONE [Concomitant]
     Active Substance: PREDNISOLONE

REACTIONS (1)
  - Platelet count decreased [Unknown]
